FAERS Safety Report 9863823 (Version 1)
Quarter: 2014Q1

REPORT INFORMATION
  Report Type: Spontaneous
  Country: FR (occurrence: FR)
  Receive Date: 20140203
  Receipt Date: 20140203
  Transmission Date: 20141002
  Serious: Yes (Hospitalization)
  Sender: FDA-Public Use
  Company Number: FR-PFIZER INC-2014026545

PATIENT
  Age: 8 Year
  Sex: Male
  Weight: 26 kg

DRUGS (3)
  1. ADVIL [Suspect]
     Indication: PAIN
     Dosage: 1 DF, SINGLE
     Route: 048
     Dates: start: 20131107, end: 20131107
  2. INFANRIX TETRA [Suspect]
     Indication: IMMUNISATION
     Dosage: 1 DF, SINGLE
     Route: 030
     Dates: start: 20131106, end: 20131106
  3. EMLA PATCH [Suspect]
     Indication: PAIN
     Dosage: UNK
     Route: 062
     Dates: start: 20131106, end: 20131106

REACTIONS (6)
  - Injection site pain [Recovered/Resolved]
  - Hyperthermia [Recovered/Resolved]
  - Cellulitis [Recovered/Resolved]
  - Injection site inflammation [Recovered/Resolved]
  - Vaccination site vesicles [Recovered/Resolved]
  - Lymphadenopathy [Unknown]
